FAERS Safety Report 20803526 (Version 1)
Quarter: 2022Q2

REPORT INFORMATION
  Report Type: Spontaneous
  Country: FR (occurrence: FR)
  Receive Date: 20220509
  Receipt Date: 20220509
  Transmission Date: 20220721
  Serious: Yes (Disabling)
  Sender: FDA-Public Use
  Company Number: None

PATIENT
  Age: 81 Year
  Sex: Male
  Weight: 52 kg

DRUGS (5)
  1. FLUOROURACIL [Suspect]
     Active Substance: FLUOROURACIL
     Indication: Adenocarcinoma of colon
     Dosage: 600 MILLIGRAM/SQ. METER
     Route: 042
     Dates: start: 19931018, end: 199404
  2. FLUOROURACIL [Suspect]
     Active Substance: FLUOROURACIL
     Indication: Adenocarcinoma gastric
     Dosage: 600 MILLIGRAM/SQ. METER
     Route: 041
     Dates: start: 2012, end: 2013
  3. FLUOROURACIL [Suspect]
     Active Substance: FLUOROURACIL
     Dosage: 400 MILLIGRAM/SQ. METER
     Route: 040
     Dates: start: 2012, end: 2013
  4. MITOMYCIN [Suspect]
     Active Substance: MITOMYCIN
     Indication: Adenocarcinoma gastric
     Dosage: 10 MILLIGRAM/SQ. METER
     Route: 042
     Dates: start: 19931018, end: 199404
  5. DOXORUBICIN [Suspect]
     Active Substance: DOXORUBICIN
     Indication: Adenocarcinoma gastric
     Dosage: 30 MILLIGRAM/SQ. METER
     Route: 042
     Dates: start: 19931018, end: 199404

REACTIONS (1)
  - Pulmonary arterial hypertension [Not Recovered/Not Resolved]

NARRATIVE: CASE EVENT DATE: 20211012
